FAERS Safety Report 16473825 (Version 1)
Quarter: 2019Q2

REPORT INFORMATION
  Report Type: Spontaneous
  Country: US (occurrence: US)
  Receive Date: 20190515
  Receipt Date: 20190515
  Transmission Date: 20190711
  Serious: No
  Sender: FDA-Public Use
  Company Number: None

PATIENT
  Age: 33 Year
  Sex: Female

DRUGS (1)
  1. TOPIRAMATE 25MG TABLET [Suspect]
     Active Substance: TOPIRAMATE
     Indication: WEIGHT DECREASED
     Dosage: TAKE 1 TABLET ONCE A DAY FOR 7 DAYS. THEN 2 TABLETS FOR 7 DAYS. THEN 3 TABLETS FOR 7 DAYS.
     Route: 048

REACTIONS (12)
  - Cough [None]
  - Chills [None]
  - Disorientation [None]
  - Dyspnoea [None]
  - Insomnia [None]
  - Fatigue [None]
  - Chest pain [None]
  - Off label use [None]
  - Pruritus [None]
  - Confusional state [None]
  - Vision blurred [None]
  - Dysuria [None]
